FAERS Safety Report 12412490 (Version 1)
Quarter: 2016Q2

REPORT INFORMATION
  Report Type: Spontaneous
  Country: US (occurrence: US)
  Receive Date: 20160527
  Receipt Date: 20160527
  Transmission Date: 20160815
  Serious: No
  Sender: FDA-Public Use
  Company Number: US-009507513-1605USA006679

PATIENT
  Age: 25 Year
  Sex: Female
  Weight: 115.65 kg

DRUGS (1)
  1. NEXPLANON [Suspect]
     Active Substance: ETONOGESTREL
     Dosage: UNK, IMPLANT IN LEFT ARM
     Route: 059
     Dates: start: 201505

REACTIONS (1)
  - Adverse drug reaction [Unknown]
